FAERS Safety Report 8475871-2 (Version None)
Quarter: 2012Q2

REPORT INFORMATION
  Report Type: 
  Country: None (occurrence: None)
  Receive Date: 20120628
  Receipt Date: 20120626
  Transmission Date: 20120825
  Serious: Yes (Death)
  Sender: FDA-Public Use
  Company Number: US-PFIZER INC-2012153470

PATIENT
  Sex: Female

DRUGS (2)
  1. GENOTROPIN [Suspect]
     Indication: UTERINE LEIOMYOMA
  2. GENOTROPIN [Suspect]
     Indication: DWARFISM
     Dosage: 0.4 MG, 1X/DAY 7 DAYS A WEEK
     Route: 058
     Dates: start: 20090206

REACTIONS (1)
  - DEATH [None]
